APPROVED DRUG PRODUCT: PULMICORT RESPULES
Active Ingredient: BUDESONIDE
Strength: 0.5MG/2ML
Dosage Form/Route: SUSPENSION;INHALATION
Application: N020929 | Product #002 | TE Code: AN
Applicant: ASTRAZENECA PHARMACEUTICALS LP
Approved: Aug 8, 2000 | RLD: Yes | RS: Yes | Type: RX